FAERS Safety Report 5432135-9 (Version None)
Quarter: 2007Q3

REPORT INFORMATION
  Report Type: 
  Country: None (occurrence: None)
  Receive Date: 20070830
  Receipt Date: 20070820
  Transmission Date: 20080115
  Serious: Yes (Hospitalization, Other)
  Sender: FDA-Public Use
  Company Number: US-PFIZER INC-2006108878

PATIENT
  Sex: Male

DRUGS (3)
  1. CELEBREX [Suspect]
     Indication: ARTHRITIS
     Dates: start: 19990101, end: 20010201
  2. BEXTRA [Suspect]
     Indication: ARTHRITIS
     Dates: start: 20011101, end: 20030825
  3. VIOXX [Suspect]
     Dates: start: 19991001, end: 20030101

REACTIONS (8)
  - BRAIN DAMAGE [None]
  - CARDIAC ARREST [None]
  - CARDIAC DISORDER [None]
  - CARDIAC FAILURE CONGESTIVE [None]
  - CORONARY ARTERY DISEASE [None]
  - HYPOXIC ENCEPHALOPATHY [None]
  - MITRAL VALVE REPLACEMENT [None]
  - MYOCARDIAL INFARCTION [None]
